FAERS Safety Report 4864488-4 (Version None)
Quarter: 2005Q4

REPORT INFORMATION
  Report Type: 
  Country: None (occurrence: None)
  Receive Date: 20051222
  Receipt Date: 20051214
  Transmission Date: 20060501
  Serious: Yes (Other)
  Sender: FDA-Public Use
  Company Number: US-BRISTOL-MYERS SQUIBB COMPANY-13215413

PATIENT
  Age: 64 Year
  Sex: Female
  Weight: 83 kg

DRUGS (18)
  1. COUMADIN [Suspect]
     Dates: start: 19920101
  2. PLAVIX [Suspect]
     Indication: REHABILITATION THERAPY
     Dates: start: 20050301
  3. QUININE [Concomitant]
     Dosage: QUININE WATER AND SULFATE 4-5 MONTHS
  4. METFORMIN HCL [Concomitant]
  5. ALTACE [Concomitant]
     Dosage: DURATION OF THERAPY:  ^A COUPLE OF YEARS^
  6. PREVACID [Concomitant]
     Dosage: DURATION OF THERAPY:  ^A COUPLE OF YEARS^
  7. ZOLOFT [Concomitant]
     Dosage: DURATION OF THERAPY:  ^A COUPLE OF YEARS^
  8. CLONAZEPAM [Concomitant]
     Dosage: DURATION OF THERAPY:  ^A COUPLE OF YEARS^
  9. ATENOLOL [Concomitant]
     Dosage: DURATION OF THERAPY:  ^A COUPLE OF YEARS^
  10. NORVASC [Concomitant]
     Dates: start: 20050310
  11. REMERON [Concomitant]
     Dosage: DURATION OF THERAPY:  ^8-9 MONTHS^
  12. MECLIZINE [Concomitant]
  13. ASPIRIN [Concomitant]
     Dates: start: 19920101
  14. CALTRATE + D [Concomitant]
  15. CENTRUM SILVER [Concomitant]
  16. NASONEX [Concomitant]
     Dosage: DURATION OF THERAPY:  ^2-3 YEARS^
     Route: 045
  17. FLONASE [Concomitant]
     Dosage: DURATION OF THERAPY:  ^2-3 YEARS^
     Route: 045
  18. TYLENOL W/ CODEINE [Concomitant]
     Dates: start: 20050301

REACTIONS (7)
  - CONTUSION [None]
  - ECCHYMOSIS [None]
  - ERYTHEMA [None]
  - HIP ARTHROPLASTY [None]
  - JOINT SWELLING [None]
  - JOINT WARMTH [None]
  - MUSCLE SPASMS [None]
